FAERS Safety Report 6825731-5 (Version None)
Quarter: 2010Q3

REPORT INFORMATION
  Report Type: 
  Country: None (occurrence: None)
  Receive Date: 20100709
  Receipt Date: 20100629
  Transmission Date: 20110219
  Serious: No
  Sender: FDA-Public Use
  Company Number: US-BIOGENIDEC-2010BI022433

PATIENT
  Sex: Female

DRUGS (3)
  1. TYSABRI [Suspect]
     Indication: MULTIPLE SCLEROSIS
     Route: 042
     Dates: start: 20070823, end: 20071115
  2. TYSABRI [Suspect]
     Route: 042
     Dates: start: 20080328, end: 20080728
  3. TYSABRI [Suspect]
     Route: 042
     Dates: start: 20090127

REACTIONS (3)
  - DRUG INEFFECTIVE [None]
  - GENERAL SYMPTOM [None]
  - PAIN IN EXTREMITY [None]
